FAERS Safety Report 6217901-4 (Version None)
Quarter: 2009Q2

REPORT INFORMATION
  Report Type: 
  Country: None (occurrence: None)
  Receive Date: 20090608
  Receipt Date: 20090525
  Transmission Date: 20091009
  Serious: Yes (Hospitalization)
  Sender: FDA-Public Use
  Company Number: SE-ELI_LILLY_AND_COMPANY-SE200905005888

PATIENT
  Age: 50 Year
  Sex: Female

DRUGS (4)
  1. GEMZAR [Suspect]
     Indication: OVARIAN CANCER RECURRENT
     Dosage: 1700 MG, ONCE
     Route: 042
     Dates: start: 20020115, end: 20020115
  2. FARMORUBICIN [Concomitant]
     Indication: OVARIAN CANCER RECURRENT
     Dosage: 127 MG, ONCE
     Route: 042
     Dates: start: 20020115, end: 20020115
  3. CIPRAMIL [Concomitant]
     Dosage: 20 MG, UNKNOWN
  4. LANSOPRAZOLE [Concomitant]
     Dosage: 30 MG, UNKNOWN

REACTIONS (2)
  - PYREXIA [None]
  - URTICARIA [None]
